FAERS Safety Report 5699723-6 (Version None)
Quarter: 2008Q2

REPORT INFORMATION
  Report Type: 
  Country: None (occurrence: None)
  Receive Date: 20080410
  Receipt Date: 20080329
  Transmission Date: 20081010
  Serious: Yes (Death, Hospitalization, Other)
  Sender: FDA-Public Use
  Company Number: PHHY2008FI04326

PATIENT
  Age: 24 Year
  Sex: Female

DRUGS (10)
  1. EPOETIN NOS [Concomitant]
  2. SANDIMMUNE [Suspect]
     Indication: HISTIOCYTOSIS HAEMATOPHAGIC
  3. ACYCLOVIR [Concomitant]
  4. IMMUNE GLOBULIN INTRAVENOUS (HUMAN) [Concomitant]
     Dosage: 0.2 G/DAY
  5. DEXAMETASON [Concomitant]
     Dosage: 10 MG/KG
  6. FERROUS GLYCINE SULFATE [Concomitant]
  7. FOLIC ACID [Concomitant]
  8. ETOPOSIDE [Concomitant]
  9. ROCEPHALIN [Concomitant]
  10. TAVANIC [Concomitant]

REACTIONS (16)
  - BLOOD BILIRUBIN INCREASED [None]
  - CONFUSIONAL STATE [None]
  - DIPLOPIA [None]
  - DISEASE PROGRESSION [None]
  - EPSTEIN-BARR VIRAEMIA [None]
  - HAEMOGLOBIN DECREASED [None]
  - HAEMOLYSIS [None]
  - HEPATIC ENZYME ABNORMAL [None]
  - LEUKOPENIA [None]
  - NEUTROPENIA [None]
  - PERICARDIAL EFFUSION [None]
  - PLATELET COUNT DECREASED [None]
  - PYREXIA [None]
  - SERUM FERRITIN INCREASED [None]
  - STUPOR [None]
  - TACHYCARDIA [None]
